FAERS Safety Report 15429835 (Version 2)
Quarter: 2018Q4

REPORT INFORMATION
  Report Type: Spontaneous
  Country: ZA (occurrence: ZA)
  Receive Date: 20180926
  Receipt Date: 20181004
  Transmission Date: 20190204
  Serious: Yes (Hospitalization, Other)
  Sender: FDA-Public Use
  Company Number: ZA-PFIZER INC-2018384785

PATIENT
  Age: 50 Year
  Sex: Male

DRUGS (10)
  1. FERROUS SULPHATE [FERROUS SULFATE] [Suspect]
     Active Substance: FERROUS SULFATE
     Dosage: 75 MG, UNK
  2. OMEZ [OMEPRAZOLE] [Concomitant]
     Dosage: 40 MG, UNK
  3. SYNALEVE [CAFFEINE;CODEINE PHOSPHATE;MEPROBAMATE;PARACETAMOL] [Concomitant]
     Dosage: UNK
  4. IVEDAL [Concomitant]
     Active Substance: ZOLPIDEM TARTRATE
     Dosage: 10 MG, UNK
  5. COXFLAM [Concomitant]
     Active Substance: MELOXICAM
     Dosage: 7.5 MG, UNK
  6. COVERAM [Concomitant]
     Active Substance: AMLODIPINE\PERINDOPRIL
     Dosage: 10/10MG
  7. NOVORAPID [Concomitant]
     Active Substance: INSULIN ASPART
     Dosage: 100 IU, UNK
  8. PURICOS [Concomitant]
     Active Substance: ALLOPURINOL
     Dosage: 300 MG, UNK
  9. ASPAVOR [Concomitant]
     Active Substance: ATORVASTATIN
     Dosage: 10 MG, UNK
  10. BE TABS FOLIC ACID [Concomitant]
     Dosage: 5 MG, UNK

REACTIONS (1)
  - Liver abscess [Not Recovered/Not Resolved]
